FAERS Safety Report 8973929 (Version 1)
Quarter: 2012Q4

REPORT INFORMATION
  Report Type: Report from Study
  Country: DE (occurrence: DE)
  Receive Date: 20121218
  Receipt Date: 20121218
  Transmission Date: 20130627
  Serious: Yes (Hospitalization, Other)
  Sender: FDA-Public Use
  Company Number: DE-GLAXOSMITHKLINE-Z0002250A

PATIENT
  Age: 45 Year
  Sex: Female
  Weight: 68.5 kg

DRUGS (7)
  1. PAZOPANIB [Suspect]
     Indication: OVARIAN CANCER
     Dosage: 800MG Per day
     Route: 048
     Dates: start: 20091027
  2. FRAXIPARIN [Concomitant]
     Indication: THROMBOSIS
     Dosage: 1ML Per day
     Route: 058
     Dates: start: 20090902, end: 20091111
  3. LEVOTHYROXINE [Concomitant]
     Indication: HYPOTHYROIDISM
     Dosage: 25MCG Per day
     Route: 048
     Dates: end: 20091219
  4. FEMOSTON [Concomitant]
     Dosage: 1MG Weekly
     Route: 048
     Dates: end: 20091024
  5. PHOSPHORUS SALT [Concomitant]
     Dosage: 1TBS Alternate days
     Route: 048
     Dates: start: 20090924, end: 20091107
  6. FRAXIPARIN [Concomitant]
     Indication: THROMBOSIS
     Dosage: 1ML Per day
     Route: 058
     Dates: start: 20091116, end: 20091230
  7. METAMIZOL [Concomitant]
     Indication: PYREXIA
     Route: 048
     Dates: start: 20091110, end: 20091110

REACTIONS (6)
  - Pyrexia [Recovered/Resolved]
  - Fatigue [Recovered/Resolved with Sequelae]
  - Aspartate aminotransferase increased [Recovered/Resolved]
  - Alanine aminotransferase increased [Recovered/Resolved]
  - Blood lactate dehydrogenase increased [Recovered/Resolved]
  - Vomiting [Recovered/Resolved]
